FAERS Safety Report 16081755 (Version 2)
Quarter: 2020Q1

REPORT INFORMATION
  Report Type: Report from Study
  Country: US (occurrence: US)
  Receive Date: 20190316
  Receipt Date: 20200107
  Transmission Date: 20200409
  Serious: Yes (Other)
  Sender: FDA-Public Use
  Company Number: PHEH2019US011067

PATIENT
  Sex: Female

DRUGS (1)
  1. ENTRESTO [Suspect]
     Active Substance: SACUBITRIL\VALSARTAN
     Indication: PRODUCT USED FOR UNKNOWN INDICATION
     Route: 065

REACTIONS (5)
  - Diabetic neuropathy [Unknown]
  - Hypotension [Unknown]
  - Cardiac failure [Unknown]
  - Anxiety [Unknown]
  - Ejection fraction decreased [Unknown]
